FAERS Safety Report 6460210-9 (Version None)
Quarter: 2009Q4

REPORT INFORMATION
  Report Type: 
  Country: None (occurrence: None)
  Receive Date: 20091130
  Receipt Date: 20091120
  Transmission Date: 20100525
  Serious: Yes (Death, Hospitalization)
  Sender: FDA-Public Use
  Company Number: DE-RANBAXY-2009RR-26630

PATIENT
  Age: 68 Year
  Sex: Male
  Weight: 63.5 kg

DRUGS (6)
  1. ASPIRIN [Suspect]
     Indication: CORONARY ARTERY DISEASE
     Dosage: 100 MG, QD
     Route: 048
     Dates: start: 20010101, end: 20090806
  2. PREDNISOLONE [Suspect]
     Indication: DIARRHOEA
     Dosage: 10 MG, QD
     Route: 048
     Dates: start: 20080601, end: 20090809
  3. RAMIPRIL [Suspect]
     Indication: HYPERTENSION
     Dosage: 10 MG, QD
     Route: 048
     Dates: start: 20020101, end: 20090809
  4. SIMVASTATIN [Suspect]
     Indication: DYSLIPIDAEMIA
     Dosage: 20 MG, QD
     Route: 048
     Dates: start: 20090101, end: 20090701
  5. PROANTHENOLS 100 [Suspect]
     Indication: IMMUNE ENHANCEMENT THERAPY
     Dosage: UNK
     Route: 048
     Dates: start: 20090727, end: 20090805
  6. TAMSULOSIN [Concomitant]
     Indication: BENIGN PROSTATIC HYPERPLASIA
     Dosage: UNK
     Route: 048
     Dates: end: 20090601

REACTIONS (1)
  - ACUTE HEPATIC FAILURE [None]
